FAERS Safety Report 17857293 (Version 2)
Quarter: 2020Q2

REPORT INFORMATION
  Report Type: Report from Study
  Country: US (occurrence: US)
  Receive Date: 20200603
  Receipt Date: 20200614
  Transmission Date: 20200714
  Serious: Yes (Hospitalization)
  Sender: FDA-Public Use
  Company Number: US-TAKEDA-2020TUS023930

PATIENT
  Sex: Female

DRUGS (1)
  1. VEDOLIZUMAB [Suspect]
     Active Substance: VEDOLIZUMAB
     Indication: CROHN^S DISEASE
     Dosage: 300 MILLIGRAM
     Route: 042
     Dates: start: 20200512

REACTIONS (7)
  - Pyrexia [Unknown]
  - Constipation [Unknown]
  - Headache [Unknown]
  - Decreased appetite [Unknown]
  - Blood potassium increased [Unknown]
  - Urinary tract infection [Unknown]
  - Iron deficiency [Unknown]
